FAERS Safety Report 5487800-4 (Version None)
Quarter: 2007Q3

REPORT INFORMATION
  Report Type: 
  Country: None (occurrence: None)
  Receive Date: 20070927
  Receipt Date: 20070219
  Transmission Date: 20080115
  Serious: Yes (Other)
  Sender: FDA-Public Use
  Company Number: A03200701456

PATIENT
  Age: 76 Year
  Sex: Male
  Weight: 90.7194 kg

DRUGS (13)
  1. AMBIEN [Suspect]
     Indication: INSOMNIA
     Dosage: 12.5 MG ONCE - ORAL
     Route: 048
     Dates: start: 20070215, end: 20070215
  2. VALSARTAN [Concomitant]
  3. AMLODIPINE BESYLATE [Concomitant]
  4. SOTALOL HYDROCHLORIDE [Concomitant]
  5. CLONIDINE [Concomitant]
  6. OMEPRAZOLE [Concomitant]
  7. TERAZOSIN HYDROCHLORIDE [Concomitant]
  8. FUROSEMIDE [Concomitant]
  9. WARFARIN SODIUM [Concomitant]
  10. POTASSIUM CHLORIDE [Concomitant]
  11. FOLIC ACID [Concomitant]
  12. CALCIUM [Concomitant]
  13. VITAMINS [Concomitant]

REACTIONS (5)
  - FALL [None]
  - HALLUCINATION, AUDITORY [None]
  - MEMORY IMPAIRMENT [None]
  - SKIN LACERATION [None]
  - SOMNAMBULISM [None]
